FAERS Safety Report 4453366-0 (Version None)
Quarter: 2004Q3

REPORT INFORMATION
  Report Type: 
  Country: None (occurrence: None)
  Receive Date: 20040901
  Receipt Date: 20040503
  Transmission Date: 20050211
  Serious: Yes (Hospitalization)
  Sender: FDA-Public Use
  Company Number: US047839

PATIENT
  Age: 52 Year
  Sex: Male

DRUGS (2)
  1. ENBREL [Suspect]
     Indication: RHEUMATOID ARTHRITIS
     Dosage: TWICE WEEKLY, SC
     Route: 058
     Dates: start: 20001201
  2. METHOTREXATE [Concomitant]

REACTIONS (2)
  - ABDOMINAL PAIN UPPER [None]
  - PNEUMONIA [None]
